FAERS Safety Report 9226272 (Version 2)
Quarter: 2013Q2

REPORT INFORMATION
  Report Type: Report from Study
  Country: CA (occurrence: CA)
  Receive Date: 20130411
  Receipt Date: 20130426
  Transmission Date: 20140414
  Serious: Yes (Other)
  Sender: FDA-Public Use
  Company Number: CA-ABBOTT-13P-028-1073248-00

PATIENT
  Age: 51 Year
  Sex: Female
  Weight: 54.48 kg

DRUGS (7)
  1. HUMIRA [Suspect]
     Indication: PRODUCT USED FOR UNKNOWN INDICATION
     Route: 058
     Dates: start: 20090319
  2. UNKNOWN MEDICATION [Suspect]
     Indication: GASTRIC DISORDER
     Route: 048
     Dates: start: 1990, end: 2012
  3. PREDNISONE [Suspect]
     Indication: PRODUCT USED FOR UNKNOWN INDICATION
  4. PMS-SULFASALAZINE [Concomitant]
     Indication: ANKYLOSING SPONDYLITIS
     Route: 048
  5. APO-PROPRANOLOL [Concomitant]
     Indication: MIGRAINE
     Route: 048
  6. ATORVASTATIN [Concomitant]
     Indication: BLOOD CHOLESTEROL INCREASED
     Route: 048
  7. NAPROSYN [Concomitant]
     Indication: PRODUCT USED FOR UNKNOWN INDICATION

REACTIONS (5)
  - Wrist fracture [Recovering/Resolving]
  - Fall [Recovered/Resolved]
  - Joint stiffness [Not Recovered/Not Resolved]
  - Gastric disorder [Unknown]
  - Arthralgia [Not Recovered/Not Resolved]
